FAERS Safety Report 17712853 (Version 5)
Quarter: 2021Q2

REPORT INFORMATION
  Report Type: Spontaneous
  Country: JP (occurrence: JP)
  Receive Date: 20200427
  Receipt Date: 20210505
  Transmission Date: 20210716
  Serious: Yes (Death, Life-Threatening, Hospitalization, Disabling, Other)
  Sender: FDA-Public Use
  Company Number: JP-BRISTOL-MYERS SQUIBB COMPANY-BMS-2020-033988

PATIENT
  Age: 63 Year
  Sex: Male
  Weight: 43.4 kg

DRUGS (1)
  1. OPDIVO [Suspect]
     Active Substance: NIVOLUMAB
     Indication: GASTRIC CANCER
     Dosage: 240 MILLIGRAM
     Route: 041
     Dates: start: 20190311, end: 20191021

REACTIONS (3)
  - Pneumonia aspiration [Fatal]
  - Blood pressure decreased [Fatal]
  - Shock symptom [Fatal]

NARRATIVE: CASE EVENT DATE: 20191028
